FAERS Safety Report 22092888 (Version 1)
Quarter: 2023Q1

REPORT INFORMATION
  Report Type: Spontaneous
  Country: US (occurrence: None)
  Receive Date: 20230314
  Receipt Date: 20230314
  Transmission Date: 20230417
  Serious: No
  Sender: FDA-Public Use
  Company Number: 2023A044671

PATIENT
  Sex: Female

DRUGS (1)
  1. SYMBICORT [Suspect]
     Active Substance: BUDESONIDE\FORMOTEROL FUMARATE DIHYDRATE
     Indication: Asthma
     Dosage: 160MCG/4.5MCG VIA INHALATION, 2 INHALATIONS TWO TIMES A DAY
     Route: 055

REACTIONS (2)
  - Fatigue [Unknown]
  - Device delivery system issue [Unknown]
